FAERS Safety Report 8347867-2 (Version None)
Quarter: 2012Q2

REPORT INFORMATION
  Report Type: 
  Country: None (occurrence: None)
  Receive Date: 20120509
  Receipt Date: 20120426
  Transmission Date: 20120825
  Serious: Yes (Hospitalization)
  Sender: FDA-Public Use
  Company Number: US-ELI_LILLY_AND_COMPANY-US201204009971

PATIENT
  Sex: Female

DRUGS (10)
  1. FORTEO [Suspect]
     Indication: OSTEOPOROSIS
     Dosage: 20 UG, QD
     Route: 065
  2. ZOLOFT [Concomitant]
     Dosage: UNK, QD
  3. VITAMIN D [Concomitant]
     Dosage: UNK, QD
  4. SOTALOL HCL [Concomitant]
     Indication: CARDIAC DISORDER
     Dosage: 80 MG, QD
  5. ADVAIR DISKUS 100/50 [Concomitant]
     Dosage: UNK, QD
  6. PREDNISONE [Concomitant]
  7. CALTRATE                           /00751519/ [Concomitant]
     Dosage: UNK, QD
  8. ALBUTEROL [Concomitant]
     Dosage: UNK, QD
  9. LASIX [Concomitant]
     Dosage: UNK, QD
  10. SYNTHROID [Concomitant]
     Dosage: UNK, QD

REACTIONS (2)
  - PNEUMONIA [None]
  - HEART RATE INCREASED [None]
